FAERS Safety Report 15884495 (Version 1)
Quarter: 2019Q1

REPORT INFORMATION
  Report Type: Spontaneous
  Country: GB (occurrence: GB)
  Receive Date: 20190129
  Receipt Date: 20190129
  Transmission Date: 20190417
  Serious: Yes (Life-Threatening, Hospitalization)
  Sender: FDA-Public Use
  Company Number: GB-BAYER-2019-014992

PATIENT
  Age: 43 Year
  Sex: Female
  Weight: 70 kg

DRUGS (3)
  1. ETOLYN [Suspect]
     Active Substance: ETODOLAC
     Indication: PRIMARY HEADACHE ASSOCIATED WITH SEXUAL ACTIVITY
     Dosage: 600 MG, UNK
     Route: 048
     Dates: start: 20181203, end: 20181211
  2. YASMIN [Suspect]
     Active Substance: DROSPIRENONE\ETHINYL ESTRADIOL
     Indication: CONTRACEPTION
     Dosage: 21 DF, Q4WK
     Route: 048
     Dates: start: 20180601, end: 20181230
  3. FLUTIFORM [Concomitant]
     Active Substance: FLUTICASONE PROPIONATE\FORMOTEROL FUMARATE

REACTIONS (5)
  - Heart rate increased [Recovering/Resolving]
  - Haemoptysis [Not Recovered/Not Resolved]
  - Dyspnoea [Recovering/Resolving]
  - Chest pain [Recovering/Resolving]
  - Pulmonary embolism [Recovering/Resolving]

NARRATIVE: CASE EVENT DATE: 20181209
